FAERS Safety Report 22772988 (Version 2)
Quarter: 2023Q4

REPORT INFORMATION
  Report Type: Spontaneous
  Country: US (occurrence: US)
  Receive Date: 20230801
  Receipt Date: 20231218
  Transmission Date: 20240110
  Serious: Yes (Hospitalization, Other)
  Sender: FDA-Public Use
  Company Number: US-PFIZER INC-202300263161

PATIENT
  Age: 42 Year
  Sex: Male

DRUGS (2)
  1. OXBRYTA [Suspect]
     Active Substance: VOXELOTOR
     Dosage: 1500 MG, 1X/DAY [500 MG/3 TABLETS BY MOUTH ONCE DAILY]
     Route: 048
  2. OXBRYTA [Suspect]
     Active Substance: VOXELOTOR
     Dosage: 1500 MG, 1X/DAY [500MG/3 TABLETS BY MOUTH ONCE DAILY]
     Route: 048

REACTIONS (3)
  - Hip arthroplasty [Unknown]
  - Sickle cell anaemia with crisis [Not Recovered/Not Resolved]
  - Full blood count decreased [Unknown]
